FAERS Safety Report 6839733-6 (Version None)
Quarter: 2010Q3

REPORT INFORMATION
  Report Type: 
  Country: None (occurrence: None)
  Receive Date: 20100714
  Receipt Date: 20100707
  Transmission Date: 20110219
  Serious: Yes (Death, Life-Threatening, Hospitalization)
  Sender: FDA-Public Use
  Company Number: US-BRACCO-002349

PATIENT
  Sex: Female
  Weight: 107 kg

DRUGS (11)
  1. VICODIN [Concomitant]
  2. PAXIL [Concomitant]
  3. SEROQUEL [Concomitant]
  4. RANITIDINE [Concomitant]
  5. MULTIHANCE [Suspect]
     Indication: NUCLEAR MAGNETIC RESONANCE IMAGING BRAIN
     Route: 042
     Dates: start: 20081230, end: 20081230
  6. MULTIHANCE [Suspect]
     Indication: HYPERPROLACTINAEMIA
     Route: 042
     Dates: start: 20081230, end: 20081230
  7. ADVAIR DISKUS 100/50 [Concomitant]
     Dosage: ADVAIR DISKUS 100/50
     Route: 055
  8. ALBUTEROL [Concomitant]
     Route: 055
  9. SINGULAIR [Concomitant]
     Route: 048
  10. IUD NOS [Concomitant]
     Route: 015
  11. TRAMADOL [Concomitant]
     Indication: PAIN
     Route: 048
     Dates: start: 20081201

REACTIONS (1)
  - ANAPHYLACTIC SHOCK [None]
